APPROVED DRUG PRODUCT: TETREX
Active Ingredient: TETRACYCLINE PHOSPHATE COMPLEX
Strength: EQ 500MG HYDROCHLORIDE
Dosage Form/Route: CAPSULE;ORAL
Application: A061653 | Product #003
Applicant: BRISTOL LABORATORIES INC DIV BRISTOL MYERS CO
Approved: Approved Prior to Jan 1, 1982 | RLD: No | RS: No | Type: DISCN